FAERS Safety Report 9798001 (Version 3)
Quarter: 2014Q1

REPORT INFORMATION
  Report Type: Spontaneous
  Country: US (occurrence: US)
  Receive Date: 20140106
  Receipt Date: 20140117
  Transmission Date: 20141002
  Serious: Yes (Death, Life-Threatening, Hospitalization, Other)
  Sender: FDA-Public Use
  Company Number: US-009507513-1401USA000627

PATIENT
  Sex: Male
  Weight: 88.6 kg

DRUGS (2)
  1. JANUVIA [Suspect]
     Indication: TYPE 2 DIABETES MELLITUS
     Dosage: 100 MG, QD
     Route: 048
     Dates: start: 20101006, end: 20101126
  2. JANUVIA [Suspect]
     Dosage: 100 MG, QD
     Route: 048
     Dates: start: 20101218, end: 20120304

REACTIONS (7)
  - Pancreatic carcinoma metastatic [Fatal]
  - Cholangiogram [Unknown]
  - Stent placement [Unknown]
  - Pancreatitis [Unknown]
  - Renal failure acute [Unknown]
  - Acute hepatic failure [Unknown]
  - HIV infection [Unknown]
